FAERS Safety Report 6270452-3 (Version None)
Quarter: 2009Q3

REPORT INFORMATION
  Report Type: 
  Country: None (occurrence: None)
  Receive Date: 20090716
  Receipt Date: 20081208
  Transmission Date: 20100115
  Serious: Yes (Hospitalization, Other)
  Sender: FDA-Public Use
  Company Number: KR-AVENTIS-200916794GDDC

PATIENT
  Age: 19 Year
  Sex: Female

DRUGS (4)
  1. RIFAMPICIN [Suspect]
     Indication: TUBERCULOSIS
     Dosage: DOSE: UNK
  2. PYRAZINAMIDE [Suspect]
     Indication: TUBERCULOSIS
     Dosage: DOSE: UNK
  3. ISONIAZID [Suspect]
     Indication: TUBERCULOSIS
     Dosage: DOSE: UNK
  4. ETHAMBUTOL [Suspect]
     Indication: TUBERCULOSIS
     Dosage: DOSE: UNK

REACTIONS (1)
  - PARADOXICAL DRUG REACTION [None]
